FAERS Safety Report 5780563-4 (Version None)
Quarter: 2008Q2

REPORT INFORMATION
  Report Type: 
  Country: None (occurrence: None)
  Receive Date: 20080620
  Receipt Date: 20080612
  Transmission Date: 20081010
  Serious: Yes (Other)
  Sender: FDA-Public Use
  Company Number: US-ABBOTT-08P-163-0456857-00

PATIENT
  Sex: Female
  Weight: 69.462 kg

DRUGS (6)
  1. HUMIRA [Suspect]
     Indication: OSTEOARTHRITIS
     Route: 058
     Dates: start: 20071101, end: 20080201
  2. HUMIRA [Suspect]
     Indication: PSORIASIS
     Route: 058
     Dates: start: 20080201
  3. HUMIRA [Suspect]
  4. HUMIRA [Suspect]
     Indication: OSTEOARTHRITIS
     Dates: start: 20071001, end: 20071101
  5. METHOTREXATE [Concomitant]
     Indication: OSTEOARTHRITIS
     Route: 048
  6. METHOTREXATE [Concomitant]
     Indication: PSORIASIS

REACTIONS (4)
  - ARTHRITIS [None]
  - BONE PAIN [None]
  - CARPAL TUNNEL SYNDROME [None]
  - INJECTION SITE BRUISING [None]
